FAERS Safety Report 22348583 (Version 1)
Quarter: 2023Q2

REPORT INFORMATION
  Report Type: Spontaneous
  Country: US (occurrence: US)
  Receive Date: 20230522
  Receipt Date: 20230522
  Transmission Date: 20230722
  Serious: Yes (Death, Disabling)
  Sender: FDA-Public Use
  Company Number: US-AMGEN-USASP2023084471

PATIENT
  Age: 74 Year
  Sex: Female

DRUGS (1)
  1. REPATHA [Suspect]
     Active Substance: EVOLOCUMAB
     Indication: Product used for unknown indication
     Dosage: UNK
     Route: 058

REACTIONS (2)
  - Disability [Unknown]
  - Death [Fatal]

NARRATIVE: CASE EVENT DATE: 20230512
